FAERS Safety Report 4397960-4 (Version None)
Quarter: 2004Q3

REPORT INFORMATION
  Report Type: 
  Country: None (occurrence: None)
  Receive Date: 20040713
  Receipt Date: 20040706
  Transmission Date: 20050211
  Serious: Yes (Hospitalization)
  Sender: FDA-Public Use
  Company Number: WAES 0407USA00414

PATIENT
  Age: 46 Year
  Sex: Male
  Weight: 67.586 kg

DRUGS (11)
  1. DECADRON [Suspect]
     Dosage: 20 MG/BID/PO
     Route: 048
     Dates: start: 20030620, end: 20031013
  2. PACLITAXEL [Suspect]
     Indication: NON-SMALL CELL LUNG CANCER STAGE IV
     Dosage: 225 MG/M[2] Q3W/IV
     Route: 042
     Dates: start: 20030620, end: 20031013
  3. CARBOPLATIN [Suspect]
     Indication: NON-SMALL CELL LUNG CANCER STAGE IV
     Dosage: 953 MG/Q3W/IV
     Route: 042
     Dates: start: 20030620, end: 20031013
  4. ANZEMET [Concomitant]
  5. BENADRYL [Concomitant]
  6. EX LAX LAXATIVE PILLS [Concomitant]
  7. MAGACE [Concomitant]
  8. REGLAN [Concomitant]
  9. TAGAMET [Concomitant]
  10. TYLENOL MULTI-SYMPTOM HOT MEDICA [Concomitant]
  11. HYDROCODONE HYDROCHLORIDE [Concomitant]

REACTIONS (9)
  - DIVERTICULUM [None]
  - DUODENAL ULCER [None]
  - DUODENITIS [None]
  - GASTRITIS [None]
  - GASTROINTESTINAL HAEMORRHAGE [None]
  - HAEMATOCRIT DECREASED [None]
  - HAEMOGLOBIN DECREASED [None]
  - HAEMORRHOIDS [None]
  - HIATUS HERNIA [None]
